FAERS Safety Report 16947494 (Version 1)
Quarter: 2019Q4

REPORT INFORMATION
  Report Type: Spontaneous
  Country: IE (occurrence: IE)
  Receive Date: 20191022
  Receipt Date: 20191022
  Transmission Date: 20200122
  Serious: Yes (Other)
  Sender: FDA-Public Use
  Company Number: IE-AMGEN-IRLSP2019171285

PATIENT
  Sex: Female

DRUGS (1)
  1. ARANESP [Suspect]
     Active Substance: DARBEPOETIN ALFA
     Indication: PRODUCT USED FOR UNKNOWN INDICATION
     Dosage: 10 MICROGRAM
     Route: 065
     Dates: start: 20190925

REACTIONS (3)
  - Syncope [Unknown]
  - Diarrhoea [Unknown]
  - Pain [Unknown]

NARRATIVE: CASE EVENT DATE: 20190925
